FAERS Safety Report 7099952-3 (Version None)
Quarter: 2010Q4

REPORT INFORMATION
  Report Type: 
  Country: None (occurrence: None)
  Receive Date: 20101112
  Receipt Date: 20080307
  Transmission Date: 20110411
  Serious: Yes (Other)
  Sender: FDA-Public Use
  Company Number: TH-AMGEN-THASP2008000009

PATIENT

DRUGS (1)
  1. NEUPOGEN [Suspect]

REACTIONS (1)
  - FEBRILE NEUTROPENIA [None]
